FAERS Safety Report 15261389 (Version 1)
Quarter: 2018Q3

REPORT INFORMATION
  Report Type: Spontaneous
  Country: FR (occurrence: FR)
  Receive Date: 20180809
  Receipt Date: 20180809
  Transmission Date: 20181010
  Serious: Yes (Hospitalization, Other)
  Sender: FDA-Public Use
  Company Number: FR-GLAXOSMITHKLINE-FR2018138924

PATIENT
  Age: 29 Year
  Sex: Female

DRUGS (2)
  1. LYSANXIA [Suspect]
     Active Substance: PRAZEPAM
     Indication: ANXIETY
     Dosage: UNK
     Route: 065
     Dates: start: 20150623, end: 20150703
  2. LAMICTAL [Suspect]
     Active Substance: LAMOTRIGINE
     Indication: FIBROMYALGIA
     Dosage: 75 MG, QD
     Route: 048
     Dates: start: 201504, end: 20150703

REACTIONS (1)
  - Toxic skin eruption [Unknown]

NARRATIVE: CASE EVENT DATE: 20150703
